FAERS Safety Report 18947360 (Version 1)
Quarter: 2021Q1

REPORT INFORMATION
  Report Type: Spontaneous
  Country: GB (occurrence: GB)
  Receive Date: 20210226
  Receipt Date: 20210226
  Transmission Date: 20210420
  Serious: Yes (Other)
  Sender: FDA-Public Use
  Company Number: GB-MYLANLABS-2021M1011818

PATIENT
  Age: 23 Year
  Sex: Male

DRUGS (14)
  1. ETOPOSIDE. [Concomitant]
     Active Substance: ETOPOSIDE
     Indication: RECURRENT CANCER
  2. BLEOMYCIN [Concomitant]
     Active Substance: BLEOMYCIN SULFATE
     Indication: GERM CELL CANCER
     Dosage: 15 MILLIGRAM, CYCLE GIVEN OVER 24HOURS ON DAY 2 AND 3 OF CHEMOTHERAPY AS PART OF POMB CHEMOTHERAPY
     Route: 042
     Dates: start: 201211, end: 201301
  3. ETOPOSIDE. [Concomitant]
     Active Substance: ETOPOSIDE
     Indication: GERM CELL CANCER
     Dosage: 100 MILLIGRAM/SQ. METER, CYCLE GIVEN ON DAY 1 TO 3 OF CHEMOTHERAPY AS A PART OF ACE THERAPY
     Route: 042
     Dates: start: 201211, end: 201301
  4. BLEOMYCIN [Concomitant]
     Active Substance: BLEOMYCIN SULFATE
     Indication: RECURRENT CANCER
  5. METHOTREXATE. [Concomitant]
     Active Substance: METHOTREXATE
     Indication: RECURRENT CANCER
  6. DACTINOMYCIN [Concomitant]
     Active Substance: DACTINOMYCIN
     Indication: RECURRENT CANCER
  7. CYCLOPHOSPHAMIDE. [Concomitant]
     Active Substance: CYCLOPHOSPHAMIDE
     Indication: GERM CELL CANCER
     Dosage: 500 MILLIGRAM/SQ. METER, CYCLE GIVEN ON DAY 3 OF CHEMOTHERAPY AS A PART OF ACE CHEMOTHERAPY
     Route: 042
     Dates: start: 201211, end: 201301
  8. VINCRISTINE [Concomitant]
     Active Substance: VINCRISTINE
     Indication: RECURRENT CANCER
  9. DACTINOMYCIN [Concomitant]
     Active Substance: DACTINOMYCIN
     Indication: GERM CELL CANCER
     Dosage: 0.5 MILLIGRAM, CYCLE ON DAY 1 TO 3 OF CHEMOTHERAPY AS A PART OF ACE THERAPY
     Route: 042
     Dates: start: 201211, end: 201301
  10. CISPLATIN. [Suspect]
     Active Substance: CISPLATIN
     Indication: GERM CELL CANCER
     Dosage: 120 MILLIGRAM/SQ. METER, CYCLE GIVEN OVER 12 HRS ON DAY 4 OF CHEMOTHERAPY AS PART OF POMB REGIMEN
     Route: 042
     Dates: start: 201211
  11. CISPLATIN. [Suspect]
     Active Substance: CISPLATIN
     Indication: RECURRENT CANCER
  12. VINCRISTINE [Concomitant]
     Active Substance: VINCRISTINE
     Indication: GERM CELL CANCER
     Dosage: 2 MILLIGRAM, CYCLE GIVEN OVER 24 HOURS ON DAY 1 OF CHEMOTHERAPY AS A PART OF POMB CHEMOTHERAPY
     Route: 042
     Dates: start: 201211, end: 201301
  13. METHOTREXATE. [Concomitant]
     Active Substance: METHOTREXATE
     Indication: GERM CELL CANCER
     Dosage: 300 MG/SQ. METER, CYCLE GIVEN OVER 24 HRS ON DAY 1 OF CHEMOTHERAPY AS PART OF POMB CHEMOTHERAPY
     Route: 065
     Dates: start: 201211, end: 201301
  14. CYCLOPHOSPHAMIDE. [Concomitant]
     Active Substance: CYCLOPHOSPHAMIDE
     Indication: RECURRENT CANCER

REACTIONS (2)
  - Cerebrovascular accident [Unknown]
  - Unevaluable event [Unknown]
